FAERS Safety Report 5933497-6 (Version None)
Quarter: 2008Q4

REPORT INFORMATION
  Report Type: 
  Country: None (occurrence: None)
  Receive Date: 20081024
  Receipt Date: 20081009
  Transmission Date: 20090506
  Serious: Yes (Other)
  Sender: FDA-Public Use
  Company Number: 2008S1018588

PATIENT
  Age: 55 Year
  Sex: Male

DRUGS (2)
  1. FLUOXETINE [Suspect]
     Indication: DEPRESSION
     Dosage: 40 MG; DAILY; ORAL
     Route: 048
  2. CYCLOBENZAPRINE HCL [Concomitant]

REACTIONS (3)
  - B-CELL LYMPHOMA [None]
  - INTERVERTEBRAL DISC PROTRUSION [None]
  - MYCOSIS FUNGOIDES [None]
